FAERS Safety Report 20665082 (Version 1)
Quarter: 2022Q2

REPORT INFORMATION
  Report Type: Spontaneous
  Country: HU (occurrence: HU)
  Receive Date: 20220401
  Receipt Date: 20220401
  Transmission Date: 20220720
  Serious: Yes (Death, Life-Threatening, Other)
  Sender: FDA-Public Use
  Company Number: HU-002147023-NVSC2022HU065811

PATIENT

DRUGS (6)
  1. RUXOLITINIB [Suspect]
     Active Substance: RUXOLITINIB
     Indication: Myelofibrosis
     Dosage: UNK
     Route: 065
     Dates: start: 20110913, end: 2013
  2. RUXOLITINIB [Suspect]
     Active Substance: RUXOLITINIB
     Dosage: 20 MG, BID (2X)
     Route: 065
     Dates: start: 2013, end: 2017
  3. RUXOLITINIB [Suspect]
     Active Substance: RUXOLITINIB
     Dosage: 10 MG, BID (2X)
     Route: 065
     Dates: end: 2018
  4. RUXOLITINIB [Suspect]
     Active Substance: RUXOLITINIB
     Dosage: 10 MG, BID (2X)
     Route: 065
  5. HYDROXYUREA [Concomitant]
     Active Substance: HYDROXYUREA
     Indication: Polycythaemia vera
     Dosage: UNK
     Route: 065
     Dates: start: 2004
  6. ASPIRIN [Concomitant]
     Active Substance: ASPIRIN
     Indication: Polycythaemia vera
     Dosage: UNK
     Route: 065
     Dates: start: 2014

REACTIONS (17)
  - Anaemia [Unknown]
  - Thrombocytopenia [Unknown]
  - COVID-19 [Fatal]
  - Exercise tolerance decreased [Unknown]
  - Vascular graft thrombosis [Unknown]
  - White blood cell count increased [Unknown]
  - Platelet count increased [Unknown]
  - Basal cell carcinoma [Not Recovered/Not Resolved]
  - Lipase increased [Unknown]
  - Chest discomfort [Unknown]
  - Pseudomonal sepsis [Unknown]
  - Respiratory failure [Fatal]
  - Pneumonia [Recovered/Resolved]
  - Device dislocation [Not Recovered/Not Resolved]
  - Electrocardiogram ST segment elevation [Unknown]
  - Haematoma [Unknown]
  - Bone density decreased [Unknown]

NARRATIVE: CASE EVENT DATE: 20170101
